FAERS Safety Report 21382128 (Version 1)
Quarter: 2022Q3

REPORT INFORMATION
  Report Type: Spontaneous
  Country: FR (occurrence: FR)
  Receive Date: 20220927
  Receipt Date: 20220927
  Transmission Date: 20221026
  Serious: Yes (Life-Threatening, Hospitalization)
  Sender: FDA-Public Use
  Company Number: None

PATIENT
  Age: 68 Year
  Sex: Male

DRUGS (6)
  1. ALPRAZOLAM [Suspect]
     Active Substance: ALPRAZOLAM
     Indication: Product used for unknown indication
     Dosage: 19 TABLETS OF 0.25MG, UNIT DOSE :  4.75 MG, DURATION : 1 DAYS
     Route: 065
     Dates: start: 20220816, end: 20220816
  2. ZOPICLONE [Suspect]
     Active Substance: ZOPICLONE
     Indication: Product used for unknown indication
     Dosage: 13 TABLETS OF 7.5MG , UNIT DOSE : 97.5 MG, DURATION : 1 DAYS
     Route: 065
     Dates: start: 20220816, end: 20220816
  3. OLANZAPINE [Suspect]
     Active Substance: OLANZAPINE
     Indication: Product used for unknown indication
     Dosage: 14 TABLETS OF 10MG, UNIT DOSE :  140 MG, DURATION : 1 DAY
     Route: 065
     Dates: start: 20220816, end: 20220816
  4. SERTRALINE HYDROCHLORIDE [Suspect]
     Active Substance: SERTRALINE HYDROCHLORIDE
     Indication: Product used for unknown indication
     Dosage: 6 TABLETS OF 25MG, UNIT DOSE :  150 MG,  DURATION : 1 DAY
     Route: 065
     Dates: start: 20220816, end: 20220816
  5. CLOMIPRAMINE HYDROCHLORIDE [Suspect]
     Active Substance: CLOMIPRAMINE HYDROCHLORIDE
     Indication: Product used for unknown indication
     Dosage: 20 TABLETS OF 75MG, UNIT DOSE :  1500MG,   DURATION :1 DAY
     Route: 065
     Dates: start: 20220816, end: 20220816
  6. PROTHIADEN [Suspect]
     Active Substance: DOTHIEPIN HYDROCHLORIDE
     Indication: Product used for unknown indication
     Dosage: 30 TABLETS OF 75MG, STRENGTH  :  75 MG, UNIT DOSE :  2250 MG, DURATION : 1 DAYS
     Route: 065
     Dates: start: 20220816, end: 20220816

REACTIONS (4)
  - Bezoar [Recovered/Resolved]
  - Electrocardiogram QT prolonged [Recovered/Resolved]
  - Coma [Recovered/Resolved]
  - Psychiatric symptom [Recovered/Resolved]

NARRATIVE: CASE EVENT DATE: 20220816
